FAERS Safety Report 17515470 (Version 1)
Quarter: 2020Q1

REPORT INFORMATION
  Report Type: Report from Study
  Country: IT (occurrence: IT)
  Receive Date: 20200309
  Receipt Date: 20200309
  Transmission Date: 20200409
  Serious: Yes (Other)
  Sender: FDA-Public Use
  Company Number: IT-ROCHE-2563451

PATIENT

DRUGS (13)
  1. PEMBROLIZUMAB. [Suspect]
     Active Substance: PEMBROLIZUMAB
     Indication: HODGKIN^S DISEASE
     Route: 065
  2. PEMBROLIZUMAB. [Suspect]
     Active Substance: PEMBROLIZUMAB
     Indication: RENAL CELL CARCINOMA
  3. DURVALUMAB. [Suspect]
     Active Substance: DURVALUMAB
     Indication: NEOPLASM MALIGNANT
     Route: 065
  4. ATEZOLIZUMAB. [Suspect]
     Active Substance: ATEZOLIZUMAB
     Indication: NEOPLASM MALIGNANT
  5. DURVALUMAB. [Suspect]
     Active Substance: DURVALUMAB
     Indication: NEOPLASM MALIGNANT
  6. DURVALUMAB. [Suspect]
     Active Substance: DURVALUMAB
     Indication: NEOPLASM MALIGNANT
  7. ATEZOLIZUMAB. [Suspect]
     Active Substance: ATEZOLIZUMAB
     Indication: NEOPLASM MALIGNANT
     Route: 065
  8. DURVALUMAB. [Suspect]
     Active Substance: DURVALUMAB
     Indication: NEOPLASM MALIGNANT
  9. ATEZOLIZUMAB. [Suspect]
     Active Substance: ATEZOLIZUMAB
     Indication: NEOPLASM MALIGNANT
  10. NIVOLUMAB [Suspect]
     Active Substance: NIVOLUMAB
     Indication: NEOPLASM MALIGNANT
     Route: 065
  11. PEMBROLIZUMAB. [Suspect]
     Active Substance: PEMBROLIZUMAB
     Indication: NON-SMALL CELL LUNG CANCER
  12. ATEZOLIZUMAB. [Suspect]
     Active Substance: ATEZOLIZUMAB
     Indication: NEOPLASM MALIGNANT
  13. PEMBROLIZUMAB. [Suspect]
     Active Substance: PEMBROLIZUMAB
     Indication: SQUAMOUS CELL CARCINOMA

REACTIONS (7)
  - Hypothyroidism [Unknown]
  - Hepatitis [Unknown]
  - Cranial nerve palsies multiple [Unknown]
  - Polymyalgia rheumatica [Unknown]
  - Dermatitis bullous [Unknown]
  - Interstitial lung disease [Unknown]
  - Myositis [Unknown]
